FAERS Safety Report 5343744-X (Version None)
Quarter: 2007Q2

REPORT INFORMATION
  Report Type: 
  Country: None (occurrence: None)
  Receive Date: 20070531
  Receipt Date: 20070531
  Transmission Date: 20071010
  Serious: Yes (Death)
  Sender: FDA-Public Use
  Company Number: None

PATIENT
  Sex: Male
  Weight: 80 kg

DRUGS (1)
  1. NICOTINE [Suspect]
     Indication: NICOTINE DEPENDENCE
     Dosage: HE CHEWED ABOUT 24 PIECES/DAY FOR THE PAST 8 YEARS
     Route: 048
     Dates: start: 19990101, end: 20070101

REACTIONS (1)
  - SUBARACHNOID HAEMORRHAGE [None]
